FAERS Safety Report 4680504-7 (Version None)
Quarter: 2005Q2

REPORT INFORMATION
  Report Type: 
  Country: None (occurrence: None)
  Receive Date: 20050601
  Receipt Date: 20050511
  Transmission Date: 20051028
  Serious: Yes (Other)
  Sender: FDA-Public Use
  Company Number: JP_050406295

PATIENT
  Age: 72 Year
  Sex: Male

DRUGS (11)
  1. GEMZAR [Suspect]
     Indication: PANCREATIC CARCINOMA STAGE IV
     Dosage: 1600 MG OTHER
     Route: 050
     Dates: start: 20041108, end: 20050329
  2. LOPRESSOR [Concomitant]
  3. LENDORM [Concomitant]
  4. CHINESE MEDICINE [Concomitant]
  5. VOLTAREN [Concomitant]
  6. NAIXAN (NAPROXEN SODIUM) [Concomitant]
  7. MUCOSTA (REBAMIPIDE) [Concomitant]
  8. BERIZYM [Concomitant]
  9. RIBALL (ALLOPURINOL RHONE-POULENC) [Concomitant]
  10. PROHEPARUM [Concomitant]
  11. GLYCYRON [Concomitant]

REACTIONS (15)
  - AORTIC VALVE INCOMPETENCE [None]
  - ASPARTATE AMINOTRANSFERASE INCREASED [None]
  - BACK PAIN [None]
  - BLOOD CREATINE PHOSPHOKINASE INCREASED [None]
  - BLOOD CREATINE PHOSPHOKINASE MB INCREASED [None]
  - CARDIOMYOPATHY [None]
  - HAEMATURIA [None]
  - LABORATORY TEST ABNORMAL [None]
  - MALIGNANT NEOPLASM PROGRESSION [None]
  - MITRAL VALVE INCOMPETENCE [None]
  - PANCREATIC CARCINOMA [None]
  - PLEURAL EFFUSION [None]
  - PULMONARY HYPERTENSION [None]
  - TRICUSPID VALVE INCOMPETENCE [None]
  - WHITE BLOOD CELL COUNT INCREASED [None]
